FAERS Safety Report 11100689 (Version 1)
Quarter: 2015Q2

REPORT INFORMATION
  Report Type: Spontaneous
  Country: GB (occurrence: GB)
  Receive Date: 20150508
  Receipt Date: 20150508
  Transmission Date: 20150821
  Serious: No
  Sender: FDA-Public Use
  Company Number: GB-SA-2015SA059694

PATIENT
  Sex: Female

DRUGS (1)
  1. ARAVA [Suspect]
     Active Substance: LEFLUNOMIDE
     Dosage: TAKEN TO: 4-5-MONTHS AGO
     Route: 065
     Dates: end: 2015

REACTIONS (1)
  - Exposure during pregnancy [Unknown]
